FAERS Safety Report 5128847-7 (Version None)
Quarter: 2006Q4

REPORT INFORMATION
  Report Type: 
  Country: None (occurrence: None)
  Receive Date: 20061017
  Receipt Date: 20061006
  Transmission Date: 20070319
  Serious: Yes (Disabling, Other)
  Sender: FDA-Public Use
  Company Number: GB-JNJFOC-20061001784

PATIENT
  Age: 45 Year
  Sex: Female
  Weight: 63 kg

DRUGS (4)
  1. MICRONOR [Suspect]
     Indication: CONTRACEPTION
     Route: 048
  2. METHOTREXATE [Interacting]
     Indication: RHEUMATOID ARTHRITIS
     Route: 048
  3. FOLIC ACID [Concomitant]
     Indication: RHEUMATOID ARTHRITIS
     Route: 048
  4. LOFEPRAMINE [Concomitant]
     Indication: DEPRESSION
     Route: 048

REACTIONS (3)
  - ARTHRALGIA [None]
  - DRUG INTERACTION [None]
  - JOINT SWELLING [None]
